FAERS Safety Report 11592273 (Version 2)
Quarter: 2015Q4

REPORT INFORMATION
  Report Type: Spontaneous
  Country: GB (occurrence: GB)
  Receive Date: 20151005
  Receipt Date: 20151015
  Transmission Date: 20160304
  Serious: Yes (Other)
  Sender: FDA-Public Use
  Company Number: GB-ACCORD-034078

PATIENT
  Age: 46 Year
  Sex: Male
  Weight: 92.9 kg

DRUGS (3)
  1. AMLODIPINE [Suspect]
     Active Substance: AMLODIPINE BESYLATE
     Indication: HYPERTENSION
     Route: 048
     Dates: start: 20140723, end: 20150904
  2. RAMIPRIL. [Concomitant]
     Active Substance: RAMIPRIL
     Indication: HYPERTENSION
     Route: 048
     Dates: start: 20110228
  3. INDAPAMIDE/INDAPAMIDE HEMIHYDRATE [Concomitant]
     Indication: HYPERTENSION
     Route: 048
     Dates: start: 20121204

REACTIONS (1)
  - Gingival hyperplasia [Not Recovered/Not Resolved]
